FAERS Safety Report 6690481-5 (Version None)
Quarter: 2010Q2

REPORT INFORMATION
  Report Type: 
  Country: None (occurrence: None)
  Receive Date: 20100419
  Receipt Date: 20100419
  Transmission Date: 20101027
  Serious: No
  Sender: FDA-Public Use
  Company Number: None

PATIENT
  Sex: Female
  Weight: 49.8957 kg

DRUGS (1)
  1. ALENDRONATE SODIUM [Suspect]
     Indication: OSTEOPOROSIS
     Dosage: ONE ONCE WEEKLY 2003 FOSAMAX ALENDRONATE 2008
     Dates: start: 20030101, end: 20080101

REACTIONS (2)
  - GAIT DISTURBANCE [None]
  - UNEVALUABLE EVENT [None]
